FAERS Safety Report 4716589-9 (Version None)
Quarter: 2005Q3

REPORT INFORMATION
  Report Type: 
  Country: None (occurrence: None)
  Receive Date: 20050713
  Receipt Date: 20050630
  Transmission Date: 20060218
  Serious: No
  Sender: FDA-Public Use
  Company Number: 2004040495

PATIENT
  Age: 45 Year
  Sex: Female

DRUGS (6)
  1. SORTIS (ATORVASTATIN) [Suspect]
     Indication: HYPERCHOLESTEROLAEMIA
     Dosage: 20 MG (20 MG, 1 IN 1 D), ORAL
     Route: 048
     Dates: end: 20040517
  2. ZOLOFT [Concomitant]
  3. AMARYL [Concomitant]
  4. COAPROVEL (HYDROCHLOROTHIAZIDE, IRBESARTAN) [Concomitant]
  5. TRAMAL (TRAMAL HYDROCHLORIDE) [Concomitant]
  6. ACETAMINOPHEN [Concomitant]

REACTIONS (4)
  - ARTHRALGIA [None]
  - DEPRESSION [None]
  - DRUG EXPOSURE DURING PREGNANCY [None]
  - PREGNANCY [None]
